FAERS Safety Report 10229396 (Version 1)
Quarter: 2014Q2

REPORT INFORMATION
  Report Type: Spontaneous
  Country: US (occurrence: None)
  Receive Date: 20140508
  Receipt Date: 20140508
  Transmission Date: 20141212
  Serious: No
  Sender: FDA-Public Use
  Company Number: ALL1-2014-00732

PATIENT
  Age: 57 Year
  Sex: Male

DRUGS (1)
  1. FIRAZYR (ICATIBANT) SOLUTION FOR INJECTION IN PRE-FILLED SYRINGE [Suspect]
     Indication: HEREDITARY ANGIOEDEMA
     Route: 058

REACTIONS (1)
  - Injection site pain [None]
